FAERS Safety Report 7226403-8 (Version None)
Quarter: 2011Q1

REPORT INFORMATION
  Report Type: 
  Country: None (occurrence: None)
  Receive Date: 20110110
  Receipt Date: 20110110
  Transmission Date: 20110831
  Serious: Yes (Death)
  Sender: FDA-Public Use
  Company Number: None

PATIENT
  Age: 74 Year
  Sex: Female
  Weight: 51.7101 kg

DRUGS (1)
  1. LOPRESSOR [Suspect]
     Indication: BLOOD PRESSURE INCREASED
     Dosage: 2.5 MG EVERY 4 HOURS
     Dates: start: 20090120, end: 20090120

REACTIONS (6)
  - RESPIRATORY ARREST [None]
  - LOSS OF CONSCIOUSNESS [None]
  - BLOOD PRESSURE DECREASED [None]
  - WRONG TECHNIQUE IN DRUG USAGE PROCESS [None]
  - OXYGEN SATURATION DECREASED [None]
  - CARDIAC FAILURE [None]
